FAERS Safety Report 13277198 (Version 1)
Quarter: 2017Q1

REPORT INFORMATION
  Report Type: Spontaneous
  Country: US (occurrence: US)
  Receive Date: 20170228
  Receipt Date: 20170228
  Transmission Date: 20170428
  Serious: No
  Sender: FDA-Public Use
  Company Number: None

PATIENT
  Age: 62 Year
  Sex: Female
  Weight: 59.02 kg

DRUGS (8)
  1. VIBERZI [Concomitant]
     Active Substance: ELUXADOLINE
  2. ASACOL HD [Concomitant]
     Active Substance: MESALAMINE
  3. AB8 PROBIOTICS [Concomitant]
  4. VITAMIN D3 [Concomitant]
     Active Substance: CHOLECALCIFEROL
  5. ATENOLOL. [Concomitant]
     Active Substance: ATENOLOL
  6. LORAZEPAM. [Concomitant]
     Active Substance: LORAZEPAM
  7. COLESTIPOL HCL IGM GENERIC FO=R COLESTID [Suspect]
     Active Substance: COLESTIPOL HYDROCHLORIDE
     Indication: GASTROINTESTINAL MOTILITY DISORDER
     Dosage: 2 PILLS 3X DAILY BY MOUTH
     Route: 048
     Dates: start: 20170118, end: 20170118
  8. ESCITALOPRAM [Concomitant]
     Active Substance: ESCITALOPRAM OXALATE

REACTIONS (6)
  - Vomiting [None]
  - Arthralgia [None]
  - Therapy cessation [None]
  - Dyspnoea [None]
  - Abdominal pain [None]
  - Diarrhoea [None]

NARRATIVE: CASE EVENT DATE: 20170118
